FAERS Safety Report 24071920 (Version 3)
Quarter: 2024Q3

REPORT INFORMATION
  Report Type: Spontaneous
  Country: EC (occurrence: EC)
  Receive Date: 20240710
  Receipt Date: 20240805
  Transmission Date: 20241016
  Serious: Yes (Other)
  Sender: BOEHRINGER INGELHEIM
  Company Number: EC-BoehringerIngelheim-2024-BI-037714

PATIENT
  Age: 65 Year
  Sex: Female
  Weight: 99.8 kg

DRUGS (7)
  1. EMPAGLIFLOZIN\METFORMIN HYDROCHLORIDE [Suspect]
     Active Substance: EMPAGLIFLOZIN\METFORMIN HYDROCHLORIDE
     Indication: Type 2 diabetes mellitus
     Dosage: 12.5/1000 MG
     Route: 048
     Dates: start: 202306, end: 202406
  2. EMPAGLIFLOZIN\METFORMIN HYDROCHLORIDE [Suspect]
     Active Substance: EMPAGLIFLOZIN\METFORMIN HYDROCHLORIDE
     Dosage: 12.5/1000 MG, BID
     Route: 048
     Dates: start: 202406
  3. dulcolax [Concomitant]
     Indication: Product used for unknown indication
  4. TRESIBA (SLOW INSULIN) [Concomitant]
     Indication: Product used for unknown indication
     Dosage: REGULARLY.
     Route: 058
     Dates: start: 202306
  5. AERO OM [Concomitant]
     Indication: Flatulence
     Route: 048
  6. FAST INSULIN [Concomitant]
     Indication: Product used for unknown indication
     Dosage: QD
     Route: 058
     Dates: start: 202306
  7. CARDIOASPIRINA [Concomitant]
     Active Substance: ASPIRIN
     Indication: Thrombosis prophylaxis
     Dosage: QD
     Route: 048

REACTIONS (4)
  - Drug ineffective [Recovering/Resolving]
  - Product counterfeit [Unknown]
  - Product colour issue [Unknown]
  - Medication error [Unknown]
